FAERS Safety Report 17803878 (Version 1)
Quarter: 2020Q2

REPORT INFORMATION
  Report Type: Spontaneous
  Country: US (occurrence: US)
  Receive Date: 20200519
  Receipt Date: 20200519
  Transmission Date: 20200714
  Serious: No
  Sender: FDA-Public Use
  Company Number: US-CADILA HEALTHCARE LIMITED-US-ZYDUS-048424

PATIENT

DRUGS (1)
  1. MESALAMINE. [Suspect]
     Active Substance: MESALAMINE
     Indication: COLITIS ULCERATIVE
     Dosage: 800 MILLIGRAM,FREQUENCY :THREE TIME DAILY
     Route: 048
     Dates: start: 2018

REACTIONS (3)
  - Micturition urgency [Unknown]
  - Urinary retention [Not Recovered/Not Resolved]
  - Pollakiuria [Not Recovered/Not Resolved]
